FAERS Safety Report 7806430-X (Version None)
Quarter: 2011Q4

REPORT INFORMATION
  Report Type: 
  Country: None (occurrence: None)
  Receive Date: 20111011
  Receipt Date: 20111003
  Transmission Date: 20120403
  Serious: Yes (Hospitalization)
  Sender: FDA-Public Use
  Company Number: US-JNJFOC-20111001943

PATIENT
  Sex: Female
  Weight: 60.78 kg

DRUGS (3)
  1. ACTIQ [Suspect]
     Indication: PAIN
     Dosage: 4 POPS PER DAY
     Route: 048
     Dates: start: 20070101
  2. DURAGESIC-100 [Suspect]
     Indication: PAIN
     Dosage: 200MCG/HR/ 100MCG/HR/ 1 EVERY 48 HOURS
     Route: 062
     Dates: start: 20070101
  3. DURAGESIC-100 [Suspect]
     Indication: THERMAL BURN
     Dosage: 200MCG/HR/ 100MCG/HR/ 1 EVERY 48 HOURS
     Route: 062
     Dates: start: 20070101

REACTIONS (6)
  - RESPIRATORY ARREST [None]
  - INAPPROPRIATE SCHEDULE OF DRUG ADMINISTRATION [None]
  - DRUG DOSE OMISSION [None]
  - DRUG INEFFECTIVE [None]
  - BURNING SENSATION [None]
  - MALAISE [None]
